FAERS Safety Report 5674558-9 (Version None)
Quarter: 2008Q1

REPORT INFORMATION
  Report Type: 
  Country: None (occurrence: None)
  Receive Date: 20080319
  Receipt Date: 20080319
  Transmission Date: 20080703
  Serious: Yes (Life-Threatening, Hospitalization)
  Sender: FDA-Public Use
  Company Number: None

PATIENT
  Age: 45 Year
  Sex: Female
  Weight: 56.6996 kg

DRUGS (2)
  1. ENBREL [Suspect]
     Indication: RHEUMATOID ARTHRITIS
     Dosage: 25MG 2 TIMES A WEEK SQ
     Route: 058
     Dates: start: 20030101, end: 20060601
  2. METHOTREXATE [Concomitant]

REACTIONS (1)
  - PANCREATIC CARCINOMA [None]
